FAERS Safety Report 6610557-8 (Version None)
Quarter: 2010Q1

REPORT INFORMATION
  Report Type: 
  Country: None (occurrence: None)
  Receive Date: 20100302
  Receipt Date: 20100222
  Transmission Date: 20100710
  Serious: Yes (Other)
  Sender: FDA-Public Use
  Company Number: US-PFIZER INC-2010011013

PATIENT
  Sex: Male
  Weight: 82.54 kg

DRUGS (3)
  1. LIPITOR [Suspect]
     Indication: BLOOD CHOLESTEROL INCREASED
     Dosage: 40 MG, 1X/DAY
     Route: 048
  2. ACETYLSALICYLIC ACID [Concomitant]
     Dosage: 0.3 G, 2X/WEEK
  3. LEVITRA [Concomitant]
     Dosage: UNK, OCCASSIONALLY

REACTIONS (5)
  - GAIT DISTURBANCE [None]
  - LOSS OF PROPRIOCEPTION [None]
  - MUSCULAR WEAKNESS [None]
  - NEUROPATHY PERIPHERAL [None]
  - SENSORY DISTURBANCE [None]
